FAERS Safety Report 9184382 (Version 1)
Quarter: 2012Q4

REPORT INFORMATION
  Report Type: 
  Country: US (occurrence: US)
  Receive Date: 20121101
  Receipt Date: 20121101
  Transmission Date: 20130627
  Serious: No
  Sender: FDA-Public Use
  Company Number: US-PFIZER INC-2012272119

PATIENT
  Age: 47 Year
  Sex: Female
  Weight: 76.19 kg

DRUGS (3)
  1. LYRICA [Suspect]
     Indication: FIBROMYALGIA
     Dosage: UNK
  2. LYRICA [Suspect]
     Dosage: UNK, 2x/day
  3. CYMBALTA [Concomitant]
     Dosage: 120 mg, UNK

REACTIONS (2)
  - Oedema peripheral [Unknown]
  - Inappropriate schedule of drug administration [Unknown]
